FAERS Safety Report 7927236-7 (Version None)
Quarter: 2011Q4

REPORT INFORMATION
  Report Type: 
  Country: None (occurrence: None)
  Receive Date: 20111118
  Receipt Date: 20111108
  Transmission Date: 20120403
  Serious: Yes (Hospitalization, Other)
  Sender: FDA-Public Use
  Company Number: BR-SANOFI-AVENTIS-2011SA051233

PATIENT
  Age: 71 Year
  Sex: Male
  Weight: 71 kg

DRUGS (16)
  1. ISOSORBIDE MONONITRATE [Concomitant]
     Indication: CARDIAC DISORDER
     Route: 048
  2. ASPIRIN [Concomitant]
     Indication: CARDIAC DISORDER
     Route: 048
  3. ALDACTONE [Concomitant]
  4. HYDRALAZINE HCL [Concomitant]
  5. PLAVIX [Concomitant]
  6. PANTOPRAZOLE [Concomitant]
     Route: 048
  7. FUROSEMIDE [Concomitant]
     Route: 048
  8. CARVEDILOL [Concomitant]
     Indication: CARDIAC DISORDER
     Route: 048
  9. HYDRALAZINE HCL [Concomitant]
     Indication: CARDIAC DISORDER
     Route: 048
  10. FOLIC ACID [Concomitant]
     Route: 048
  11. LANTUS [Suspect]
     Indication: TYPE 2 DIABETES MELLITUS
     Route: 058
  12. APIDRA [Suspect]
     Indication: TYPE 2 DIABETES MELLITUS
     Route: 058
  13. CLOPIDOGREL [Concomitant]
     Indication: CARDIAC DISORDER
     Route: 048
  14. CLIKSTAR [Suspect]
     Indication: DEVICE THERAPY
  15. AUTOPEN 24 [Suspect]
     Indication: DEVICE THERAPY
  16. LASIX [Concomitant]

REACTIONS (10)
  - LUNG DISORDER [None]
  - MYOCARDIAL INFARCTION [None]
  - DYSPNOEA [None]
  - DIZZINESS [None]
  - DRUG INEFFECTIVE [None]
  - ASTHENIA [None]
  - RENAL IMPAIRMENT [None]
  - OEDEMA PERIPHERAL [None]
  - WEIGHT DECREASED [None]
  - HYPERGLYCAEMIA [None]
